FAERS Safety Report 23716276 (Version 1)
Quarter: 2024Q2

REPORT INFORMATION
  Report Type: Spontaneous
  Country: CH (occurrence: CH)
  Receive Date: 20240408
  Receipt Date: 20240408
  Transmission Date: 20240716
  Serious: Yes (Other)
  Sender: FDA-Public Use
  Company Number: CH-SANDOZ-SDZ2024CH035399

PATIENT
  Age: 77 Year
  Sex: Female

DRUGS (1)
  1. CIPROFLOXACIN [Suspect]
     Active Substance: CIPROFLOXACIN
     Indication: Product used for unknown indication
     Dosage: 750 MG, BID
     Route: 065

REACTIONS (2)
  - Gamma-glutamyltransferase increased [Unknown]
  - AST/ALT ratio abnormal [Unknown]
